FAERS Safety Report 6149797-3 (Version None)
Quarter: 2009Q2

REPORT INFORMATION
  Report Type: 
  Country: None (occurrence: None)
  Receive Date: 20090402
  Receipt Date: 20081106
  Transmission Date: 20091009
  Serious: Yes (Other)
  Sender: FDA-Public Use
  Company Number: 2008SU0255FU1

PATIENT
  Age: 87 Year
  Sex: Female

DRUGS (7)
  1. SULAR [Suspect]
     Indication: HYPERTENSION
     Dosage: 17MG, QD34MG, DAILY
  2. SULAR [Suspect]
     Indication: HYPERTENSION
     Dates: end: 20081107
  3. LEVOTHYROXINE SODIUM [Concomitant]
  4. ZETIA [Concomitant]
  5. ASPIRIN [Concomitant]
  6. CENTRUM SILVER [Concomitant]
  7. CALCIUM [Concomitant]

REACTIONS (2)
  - BLOOD PRESSURE INCREASED [None]
  - DRUG INEFFECTIVE [None]
